FAERS Safety Report 6485564-9 (Version None)
Quarter: 2009Q4

REPORT INFORMATION
  Report Type: 
  Country: None (occurrence: None)
  Receive Date: 20091209
  Receipt Date: 20090630
  Transmission Date: 20100525
  Serious: No
  Sender: FDA-Public Use
  Company Number: US-AMGEN-KDL353806

PATIENT
  Sex: Female

DRUGS (5)
  1. ENBREL [Suspect]
     Indication: SPONDYLOARTHROPATHY
     Route: 058
     Dates: start: 20090202
  2. METHOTREXATE [Concomitant]
     Route: 048
  3. OMEPRAZOLE [Concomitant]
     Route: 048
  4. MELOXICAM [Concomitant]
     Route: 048
  5. FOLIC ACID [Concomitant]
     Route: 048

REACTIONS (2)
  - INJECTION SITE HAEMORRHAGE [None]
  - WEIGHT DECREASED [None]
